FAERS Safety Report 12204355 (Version 3)
Quarter: 2016Q2

REPORT INFORMATION
  Report Type: Spontaneous
  Country: GB (occurrence: GB)
  Receive Date: 20160323
  Receipt Date: 20160420
  Transmission Date: 20160815
  Serious: Yes (Other)
  Sender: FDA-Public Use
  Company Number: GB-NOVOPROD-484150

PATIENT
  Age: 50 Year
  Sex: Male

DRUGS (2)
  1. LEVEMIR PENFILL [Suspect]
     Active Substance: INSULIN DETEMIR
     Indication: DIABETES MELLITUS
  2. NOVORAPID [Suspect]
     Active Substance: INSULIN ASPART
     Indication: DIABETES MELLITUS

REACTIONS (6)
  - Device issue [Unknown]
  - Blood glucose increased [Unknown]
  - Injury [Unknown]
  - Blood glucose fluctuation [Unknown]
  - Hypoglycaemia [Unknown]
  - Emotional distress [Unknown]
